FAERS Safety Report 7890066-9 (Version None)
Quarter: 2011Q4

REPORT INFORMATION
  Report Type: 
  Country: None (occurrence: None)
  Receive Date: 20111103
  Receipt Date: 20111102
  Transmission Date: 20120403
  Serious: Yes (Death)
  Sender: FDA-Public Use
  Company Number: US-ROCHE-1004477

PATIENT
  Sex: Male

DRUGS (8)
  1. LASIX [Concomitant]
     Indication: OEDEMA
     Dates: start: 20101216
  2. AVASTIN [Suspect]
     Indication: MALIGNANT GLIOMA
     Route: 042
     Dates: start: 20110621
  3. POTASSIUM CHLORIDE [Concomitant]
     Indication: PROPHYLAXIS
     Route: 048
  4. OMEPRAZOLE [Concomitant]
     Indication: ULCER
     Route: 048
     Dates: start: 20110518
  5. KEPPRA [Concomitant]
     Indication: CONVULSION
     Dates: start: 20110705
  6. ACETAMINOPHEN [Concomitant]
     Indication: HEADACHE
     Dates: start: 20110508
  7. SENIKOLP [Concomitant]
     Indication: CONSTIPATION
     Dosage: 1 DOSAGE FORMS
     Dates: start: 20110520
  8. DEXAMETHASONE [Concomitant]
     Indication: BRAIN OEDEMA
     Dates: start: 20110705

REACTIONS (1)
  - DEATH [None]
